FAERS Safety Report 22336525 (Version 1)
Quarter: 2023Q2

REPORT INFORMATION
  Report Type: Spontaneous
  Country: US (occurrence: US)
  Receive Date: 20230518
  Receipt Date: 20230518
  Transmission Date: 20230722
  Serious: Yes (Other)
  Sender: FDA-Public Use
  Company Number: US-STERISCIENCE B.V.-2022-ST-000417

PATIENT
  Age: 46 Year
  Sex: Male

DRUGS (4)
  1. ONDANSETRON [Suspect]
     Active Substance: ONDANSETRON
     Indication: Withdrawal syndrome
     Dosage: 4 MILLIGRAM
     Route: 042
  2. CLONIDINE [Suspect]
     Active Substance: CLONIDINE
     Indication: Withdrawal syndrome
     Dosage: 0.1 MILLIGRAM
     Route: 048
  3. DULOXETINE [Concomitant]
     Active Substance: DULOXETINE
     Indication: Product used for unknown indication
     Dosage: UNK
  4. NALTREXONE [Concomitant]
     Active Substance: NALTREXONE
     Indication: Alcohol abuse
     Dosage: 50 MILLIGRAM
     Route: 048

REACTIONS (1)
  - Drug ineffective for unapproved indication [Unknown]
